FAERS Safety Report 19454451 (Version 2)
Quarter: 2021Q2

REPORT INFORMATION
  Report Type: Spontaneous
  Country: SI (occurrence: SI)
  Receive Date: 20210623
  Receipt Date: 20210630
  Transmission Date: 20210717
  Serious: Yes (Hospitalization, Other)
  Sender: FDA-Public Use
  Company Number: SI-B.I. PHARMACEUTICALS,INC./RIDGEFIELD-2021-BI-110909

PATIENT
  Age: 82 Year
  Sex: Male

DRUGS (32)
  1. CRESTOR [Suspect]
     Active Substance: ROSUVASTATIN CALCIUM
     Dosage: UNK (10)
     Route: 065
  2. CRESTOR [Suspect]
     Active Substance: ROSUVASTATIN CALCIUM
     Dosage: UNK (10)
     Route: 065
  3. EDEMID [Suspect]
     Active Substance: FUROSEMIDE
     Dosage: UNK (2 + 1)
     Route: 065
  4. GLURENORM [Suspect]
     Active Substance: GLIQUIDONE
     Indication: PRODUCT USED FOR UNKNOWN INDICATION
     Dosage: UNK (2 X 60)
     Route: 065
  5. NOLPAZA [Suspect]
     Active Substance: PANTOPRAZOLE SODIUM
     Indication: PRODUCT USED FOR UNKNOWN INDICATION
     Dosage: UNK (40)
     Route: 065
  6. PREDUCTAL [Suspect]
     Active Substance: TRIMETAZIDINE DIHYDROCHLORIDE
     Indication: PRODUCT USED FOR UNKNOWN INDICATION
     Dosage: UNK (MR)
     Route: 065
  7. PLAVIX [Suspect]
     Active Substance: CLOPIDOGREL BISULFATE
     Dosage: UNK (75, 6 MONTHS AFTER STENTING)
     Route: 065
  8. PLIVIT D3 [Suspect]
     Active Substance: CHOLECALCIFEROL
     Dosage: UNK
     Route: 065
  9. ASPIRIN [ACETYLSALICYLIC ACID] [Suspect]
     Active Substance: ASPIRIN
     Indication: PRODUCT USED FOR UNKNOWN INDICATION
     Dosage: UNK (P100)
     Route: 065
  10. TRAJENTA [Suspect]
     Active Substance: LINAGLIPTIN
     Dosage: UNK(5)
  11. ALOPURINOL [Suspect]
     Active Substance: ALLOPURINOL
     Dosage: UNK (100)
     Route: 065
  12. NOLPAZA [Suspect]
     Active Substance: PANTOPRAZOLE SODIUM
     Dosage: UNK (40)
     Route: 065
  13. EDEMID [Suspect]
     Active Substance: FUROSEMIDE
     Indication: PRODUCT USED FOR UNKNOWN INDICATION
     Dosage: UNK (2 + 1)
     Route: 065
  14. OHB12 [HYDROXOCOBALAMIN] [Suspect]
     Active Substance: HYDROXOCOBALAMIN
     Indication: PRODUCT USED FOR UNKNOWN INDICATION
     Dosage: UNK UNK, Q3MO
     Route: 065
  15. PLAVIX [Suspect]
     Active Substance: CLOPIDOGREL BISULFATE
     Indication: PRODUCT USED FOR UNKNOWN INDICATION
     Dosage: UNK (75, 6 MONTHS AFTER STENTING)
     Route: 065
  16. CONCOR [Suspect]
     Active Substance: BISOPROLOL FUMARATE
     Dosage: UNK (2 X 2.5)
     Route: 065
  17. OHB12 [HYDROXOCOBALAMIN] [Suspect]
     Active Substance: HYDROXOCOBALAMIN
     Indication: PRODUCT USED FOR UNKNOWN INDICATION
     Dosage: UNK UNK, Q3MO
     Route: 065
  18. BIOPREXANIL [PERINDOPRIL] [Suspect]
     Active Substance: PERINDOPRIL
     Indication: PRODUCT USED FOR UNKNOWN INDICATION
     Dosage: UNK (2 X 2.5)
     Route: 065
  19. PLIVIT D3 [Suspect]
     Active Substance: CHOLECALCIFEROL
     Indication: PRODUCT USED FOR UNKNOWN INDICATION
     Dosage: UNK
     Route: 065
  20. TRAJENTA [Suspect]
     Active Substance: LINAGLIPTIN
     Indication: PRODUCT USED FOR UNKNOWN INDICATION
     Dosage: UNK (5)
     Route: 065
  21. CALCIUM CARBONATE. [Suspect]
     Active Substance: CALCIUM CARBONATE
     Indication: PRODUCT USED FOR UNKNOWN INDICATION
     Dosage: UNK (500)
     Route: 065
  22. CONCOR [Suspect]
     Active Substance: BISOPROLOL FUMARATE
     Indication: PRODUCT USED FOR UNKNOWN INDICATION
     Dosage: UNK (2 X 2.5)
     Route: 065
  23. CRESTOR [Suspect]
     Active Substance: ROSUVASTATIN CALCIUM
     Indication: PRODUCT USED FOR UNKNOWN INDICATION
     Dosage: UNK (10)
     Route: 065
  24. ALOPURINOL [Suspect]
     Active Substance: ALLOPURINOL
     Indication: PRODUCT USED FOR UNKNOWN INDICATION
     Dosage: UNK (100)
     Route: 065
  25. MINITRAN [AMITRIPTYLINE HYDROCHLORIDE;PERPHENAZINE] [Suspect]
     Active Substance: AMITRIPTYLINE\PERPHENAZINE
     Indication: PRODUCT USED FOR UNKNOWN INDICATION
     Dosage: UNK (PATCHES)
     Route: 065
  26. GLURENORM [Suspect]
     Active Substance: GLIQUIDONE
     Dosage: UNK(2 X 60)
  27. CRESTOR [Suspect]
     Active Substance: ROSUVASTATIN CALCIUM
     Dosage: UNK (10)
     Route: 065
  28. PREDUCTAL [Suspect]
     Active Substance: TRIMETAZIDINE DIHYDROCHLORIDE
     Dosage: UNK (MR)
     Route: 065
  29. ASPIRIN [ACETYLSALICYLIC ACID] [Suspect]
     Active Substance: ASPIRIN
     Indication: PRODUCT USED FOR UNKNOWN INDICATION
     Dosage: UNK (P100)
     Route: 065
  30. CALCIUM CARBONATE. [Suspect]
     Active Substance: CALCIUM CARBONATE
     Indication: PRODUCT USED FOR UNKNOWN INDICATION
     Dosage: UNK (500)
     Route: 065
  31. BIOPREXANIL [PERINDOPRIL] [Suspect]
     Active Substance: PERINDOPRIL
     Indication: PRODUCT USED FOR UNKNOWN INDICATION
     Dosage: UNK (2 X 2.5)
     Route: 065
  32. MINITRAN [Suspect]
     Active Substance: NITROGLYCERIN
     Indication: PRODUCT USED FOR UNKNOWN INDICATION
     Dosage: UNK (PATCHES)
     Route: 065

REACTIONS (12)
  - Occult blood positive [Unknown]
  - Folate deficiency [Unknown]
  - Tachypnoea [Unknown]
  - Dyspnoea at rest [Unknown]
  - Blood iron decreased [Unknown]
  - Normocytic anaemia [Unknown]
  - Mobility decreased [Unknown]
  - Tachypnoea [Unknown]
  - Atrial fibrillation [Unknown]
  - Cardiac failure [Unknown]
  - Mobility decreased [Unknown]
  - Lung disorder [Unknown]

NARRATIVE: CASE EVENT DATE: 2021
